FAERS Safety Report 5806617-1 (Version None)
Quarter: 2008Q3

REPORT INFORMATION
  Report Type: 
  Country: None (occurrence: None)
  Receive Date: 20080710
  Receipt Date: 20080630
  Transmission Date: 20090109
  Serious: Yes (Hospitalization, Other)
  Sender: FDA-Public Use
  Company Number: PHEH2006US09870

PATIENT
  Sex: Female
  Weight: 160.54 kg

DRUGS (9)
  1. LOTENSIN HCT [Suspect]
     Indication: HYPERTENSION
     Dates: end: 20031216
  2. LOTENSIN HCT [Suspect]
     Dates: start: 20040701
  3. LOTENSIN [Suspect]
     Indication: HYPERTENSION
     Dosage: 10/12.5 QD
     Route: 048
     Dates: end: 20031121
  4. LOTENSIN [Suspect]
     Dosage: 10/12.5 QD
     Route: 048
     Dates: start: 20040701
  5. ALDOMET [Suspect]
     Indication: HYPERTENSION
     Dosage: 250 MG, BID
     Dates: start: 20031216, end: 20040701
  6. HYDROCHLOROTHIAZIDE [Concomitant]
     Indication: HYPERTENSION
     Dosage: 1 TAB QD
     Route: 048
  7. CLARITIN [Concomitant]
     Indication: HYPERSENSITIVITY
  8. TYLENOL [Concomitant]
  9. VITAMIN TAB [Concomitant]

REACTIONS (9)
  - AMNIOTIC FLUID VOLUME DECREASED [None]
  - BLOOD PRESSURE INCREASED [None]
  - CAESAREAN SECTION [None]
  - DRUG EXPOSURE DURING PREGNANCY [None]
  - OEDEMA PERIPHERAL [None]
  - OLIGOHYDRAMNIOS [None]
  - PRE-ECLAMPSIA [None]
  - TACHYCARDIA FOETAL [None]
  - WEIGHT INCREASED [None]
